FAERS Safety Report 5578597-8 (Version None)
Quarter: 2007Q4

REPORT INFORMATION
  Report Type: 
  Country: None (occurrence: None)
  Receive Date: 20071231
  Receipt Date: 20071221
  Transmission Date: 20080405
  Serious: Yes (Hospitalization)
  Sender: FDA-Public Use
  Company Number: PHBS2007JP17900

PATIENT
  Age: 60 Year
  Sex: Male

DRUGS (14)
  1. ZOMETA [Suspect]
     Indication: MULTIPLE MYELOMA
     Dosage: 4 MG, QD
     Route: 042
     Dates: start: 20070817, end: 20071002
  2. VELCADE [Suspect]
     Indication: MULTIPLE MYELOMA
     Dosage: 2.2 MG, QD
     Route: 042
     Dates: start: 20070903, end: 20071005
  3. BAKTAR [Suspect]
     Dosage: 2 DF, QD
     Route: 048
     Dates: start: 20070821, end: 20071019
  4. GASTER D [Suspect]
     Indication: GASTRITIS
     Dosage: 20 MG, QD
     Route: 048
     Dates: start: 20070906, end: 20071017
  5. MIYARISAN BM [Concomitant]
     Indication: DIARRHOEA
     Dosage: 3 DF, UNK
     Route: 048
     Dates: start: 20070828, end: 20071017
  6. NU-LOTAN [Concomitant]
     Indication: HYPERTENSION
     Dosage: 50 MG, UNK
     Route: 048
     Dates: start: 20060101, end: 20071017
  7. ADALAT [Concomitant]
     Indication: HYPERTENSION
     Dosage: 20 MG, UNK
     Route: 048
     Dates: start: 20060101, end: 20071017
  8. ALMARL [Concomitant]
     Indication: HYPERTENSION
     Dosage: 10 MG, UNK
     Dates: start: 20060101, end: 20071017
  9. DECADRON [Concomitant]
     Dosage: 40 MG, QD
  10. CEFEPIME HYDROCHLORIDE [Concomitant]
     Dates: start: 20070822
  11. NEUPOGEN [Concomitant]
  12. VALTREX [Concomitant]
     Indication: ORAL HERPES
     Dates: start: 20071003
  13. ITRACONAZOLE [Concomitant]
  14. LEVOFLOXACIN [Concomitant]

REACTIONS (12)
  - ATELECTASIS [None]
  - CHEST X-RAY ABNORMAL [None]
  - CHILLS [None]
  - DIARRHOEA [None]
  - FEBRILE NEUTROPENIA [None]
  - ORAL HERPES [None]
  - PHRENIC NERVE PARALYSIS [None]
  - PLATELET COUNT DECREASED [None]
  - PRURITUS [None]
  - PYREXIA [None]
  - RASH PAPULAR [None]
  - TOXIC SKIN ERUPTION [None]
